FAERS Safety Report 6299902-3 (Version None)
Quarter: 2009Q3

REPORT INFORMATION
  Report Type: 
  Country: None (occurrence: None)
  Receive Date: 20090806
  Receipt Date: 20090729
  Transmission Date: 20100115
  Serious: Yes (Other)
  Sender: FDA-Public Use
  Company Number: PHHY2009FR31767

PATIENT
  Sex: Female

DRUGS (1)
  1. SANDOSTATIN [Suspect]
     Dosage: 45 UG, DAILY

REACTIONS (2)
  - HAEMANGIOMA OF LIVER [None]
  - HEPATOMEGALY [None]
